FAERS Safety Report 5534099-6 (Version None)
Quarter: 2007Q4

REPORT INFORMATION
  Report Type: 
  Country: None (occurrence: None)
  Receive Date: 20071205
  Receipt Date: 20071122
  Transmission Date: 20080405
  Serious: Yes (Hospitalization)
  Sender: FDA-Public Use
  Company Number: GB-BAYER-200711209BNE

PATIENT

DRUGS (1)
  1. CIPROXIN [Suspect]
     Indication: PNEUMONIA

REACTIONS (1)
  - MAJOR DEPRESSION [None]
